FAERS Safety Report 7525817-6 (Version None)
Quarter: 2011Q2

REPORT INFORMATION
  Report Type: 
  Country: None (occurrence: None)
  Receive Date: 20110606
  Receipt Date: 20110404
  Transmission Date: 20111010
  Serious: Yes (Other)
  Sender: FDA-Public Use
  Company Number: B0717064A

PATIENT
  Sex: Male

DRUGS (3)
  1. LAMICTAL [Suspect]
     Dosage: 200MG PER DAY
  2. KEPPRA [Suspect]
     Dosage: 1500MG TWICE PER DAY
  3. VIMPAT [Concomitant]

REACTIONS (1)
  - HALLUCINATION [None]
